FAERS Safety Report 5664950-0 (Version None)
Quarter: 2008Q1

REPORT INFORMATION
  Report Type: 
  Country: None (occurrence: None)
  Receive Date: 20080314
  Receipt Date: 20080305
  Transmission Date: 20080703
  Serious: Yes (Disabling, Other)
  Sender: FDA-Public Use
  Company Number: DE-PFIZER INC-2008009873

PATIENT
  Sex: Female
  Weight: 59 kg

DRUGS (1)
  1. CHANTIX [Suspect]
     Indication: NICOTINE DEPENDENCE
     Dosage: FREQ:FREQUENCY: BID
     Route: 048
     Dates: start: 20080111, end: 20080127

REACTIONS (5)
  - AGGRESSION [None]
  - CRYING [None]
  - DEPRESSION [None]
  - FEELING ABNORMAL [None]
  - PERSONALITY CHANGE [None]
